FAERS Safety Report 11656769 (Version 1)
Quarter: 2015Q4

REPORT INFORMATION
  Report Type: Spontaneous
  Country: US (occurrence: US)
  Receive Date: 20151023
  Receipt Date: 20151023
  Transmission Date: 20160304
  Serious: Yes (Other)
  Sender: FDA-Public Use
  Company Number: US-LUNDBECK-DKLU2005598

PATIENT
  Age: 6 Year
  Sex: Female

DRUGS (5)
  1. ONFI [Suspect]
     Active Substance: CLOBAZAM
     Indication: SEIZURE
     Route: 065
  2. ONFI [Suspect]
     Active Substance: CLOBAZAM
     Route: 065
     Dates: end: 201510
  3. TRILEPTAL [Concomitant]
     Active Substance: OXCARBAZEPINE
     Indication: PRODUCT USED FOR UNKNOWN INDICATION
     Route: 065
  4. ONFI [Suspect]
     Active Substance: CLOBAZAM
     Indication: STATUS EPILEPTICUS
     Route: 065
     Dates: start: 201509
  5. ONFI [Suspect]
     Active Substance: CLOBAZAM
     Route: 065

REACTIONS (1)
  - Suicidal ideation [Unknown]
